FAERS Safety Report 7886513-9 (Version None)
Quarter: 2011Q4

REPORT INFORMATION
  Report Type: 
  Country: None (occurrence: None)
  Receive Date: 20111102
  Receipt Date: 20110707
  Transmission Date: 20120403
  Serious: No
  Sender: FDA-Public Use
  Company Number: US-AMGEN-USASP2011034631

PATIENT
  Age: 33 Year
  Sex: Male

DRUGS (2)
  1. ENBREL [Suspect]
     Indication: PSORIASIS
  2. ENBREL [Suspect]
     Indication: PSORIATIC ARTHROPATHY
     Dosage: 50 MG, QWK
     Dates: start: 20110610

REACTIONS (10)
  - PAIN [None]
  - ARTHRITIS [None]
  - INJECTION SITE HAEMATOMA [None]
  - BLOOD URINE PRESENT [None]
  - HEADACHE [None]
  - BLISTER [None]
  - LACERATION [None]
  - SKIN BURNING SENSATION [None]
  - SKIN DISCOLOURATION [None]
  - NEPHROLITHIASIS [None]
